FAERS Safety Report 10457830 (Version 4)
Quarter: 2015Q1

REPORT INFORMATION
  Report Type: Spontaneous
  Country: US (occurrence: US)
  Receive Date: 20140916
  Receipt Date: 20150129
  Transmission Date: 20150720
  Serious: Yes (Hospitalization, Other)
  Sender: FDA-Public Use
  Company Number: US-GLAXOSMITHKLINE-A1089118A

PATIENT
  Sex: Female
  Weight: 57.14 kg

DRUGS (17)
  1. ZETIA [Concomitant]
     Active Substance: EZETIMIBE
  2. ADVAIR HFA [Suspect]
     Active Substance: FLUTICASONE PROPIONATE\SALMETEROL XINAFOATE
     Indication: DYSPNOEA
     Dosage: 1 PUFF(S), BID
     Route: 055
     Dates: start: 201104
  3. FOSAMAX [Concomitant]
     Active Substance: ALENDRONATE SODIUM
  4. SYNTHROID [Concomitant]
     Active Substance: LEVOTHYROXINE SODIUM
  5. MECLIZINE [Concomitant]
     Active Substance: MECLIZINE\MECLIZINE HYDROCHLORIDE
  6. COUMADIN [Concomitant]
     Active Substance: WARFARIN SODIUM
  7. CRESTOR [Concomitant]
     Active Substance: ROSUVASTATIN CALCIUM
  8. LOSARTAN [Concomitant]
     Active Substance: LOSARTAN
  9. AMIODARONE [Concomitant]
     Active Substance: AMIODARONE
  10. LASIX [Concomitant]
     Active Substance: FUROSEMIDE
  11. ADVAIR HFA [Suspect]
     Active Substance: FLUTICASONE PROPIONATE\SALMETEROL XINAFOATE
     Indication: DYSPNOEA
     Dosage: UNK
  12. CARAFATE [Concomitant]
     Active Substance: SUCRALFATE
  13. DIGOXIN. [Concomitant]
     Active Substance: DIGOXIN
  14. IMDUR [Concomitant]
     Active Substance: ISOSORBIDE MONONITRATE
  15. PANTOPRAZOLE [Concomitant]
     Active Substance: PANTOPRAZOLE SODIUM
  16. ISOSORBIDE [Concomitant]
     Active Substance: ISOSORBIDE
  17. MONTELUKAST [Concomitant]
     Active Substance: MONTELUKAST SODIUM

REACTIONS (5)
  - Transient ischaemic attack [Unknown]
  - Malaise [Unknown]
  - Memory impairment [Unknown]
  - Gastrointestinal haemorrhage [Not Recovered/Not Resolved]
  - Hospitalisation [Unknown]
